FAERS Safety Report 21353384 (Version 1)
Quarter: 2022Q3

REPORT INFORMATION
  Report Type: Spontaneous
  Country: US (occurrence: US)
  Receive Date: 20220920
  Receipt Date: 20220920
  Transmission Date: 20221026
  Serious: Yes (Hospitalization)
  Sender: FDA-Public Use
  Company Number: US-BRISTOL-MYERS SQUIBB COMPANY-2022-108293

PATIENT
  Age: 79 Year
  Sex: Male
  Weight: 93.17 kg

DRUGS (1)
  1. REVLIMID [Suspect]
     Active Substance: LENALIDOMIDE
     Indication: Myelodysplastic syndrome
     Dosage: DAILYX21 DAYS, 7OFF
     Route: 048

REACTIONS (2)
  - COVID-19 [Recovered/Resolved]
  - Off label use [Unknown]
